FAERS Safety Report 10380509 (Version 1)
Quarter: 2014Q3

REPORT INFORMATION
  Report Type: Spontaneous
  Country: US (occurrence: None)
  Receive Date: 20140812
  Receipt Date: 20140812
  Transmission Date: 20150326
  Serious: Yes (Disabling)
  Sender: FDA-Public Use
  Company Number: None

PATIENT
  Age: 70 Year
  Sex: Female
  Weight: 64.41 kg

DRUGS (1)
  1. LISINOPRIL 5 MG SAFEWAY PHARMACY [Suspect]
     Active Substance: LISINOPRIL
     Indication: HYPERTENSION
     Route: 048
     Dates: start: 20140611, end: 20140711

REACTIONS (7)
  - Loss of consciousness [None]
  - Syncope [None]
  - Cough [None]
  - Blood glucose increased [None]
  - Fatigue [None]
  - Diarrhoea [None]
  - Vitamin B12 deficiency [None]

NARRATIVE: CASE EVENT DATE: 20140611
